FAERS Safety Report 8096630-9 (Version None)
Quarter: 2012Q1

REPORT INFORMATION
  Report Type: 
  Country: None (occurrence: None)
  Receive Date: 20120129
  Receipt Date: 20111130
  Transmission Date: 20120608
  Serious: No
  Sender: FDA-Public Use
  Company Number: US-ABBOTT-11P-163-0880051-00

PATIENT
  Age: 48 Year
  Sex: Female

DRUGS (9)
  1. ANASTROZOLE [Concomitant]
     Indication: PROPHYLAXIS
     Dosage: DAILY
     Route: 048
  2. TOPAMAX [Concomitant]
     Indication: MIGRAINE
     Dosage: DAILY
     Route: 048
  3. TRAZODONE HCL [Concomitant]
     Indication: PRODUCT USED FOR UNKNOWN INDICATION
     Dosage: DAILY
     Route: 048
  4. HUMIRA [Suspect]
     Indication: RHEUMATOID ARTHRITIS
     Dates: start: 20110901
  5. FOLIC ACID [Concomitant]
     Indication: PRODUCT USED FOR UNKNOWN INDICATION
     Dosage: DAILY
     Route: 048
  6. METHOTREXATE [Concomitant]
     Indication: PRODUCT USED FOR UNKNOWN INDICATION
     Route: 048
  7. MAXALT [Concomitant]
     Indication: MIGRAINE
     Route: 048
  8. SYNTHROID [Concomitant]
     Indication: HYPOTHYROIDISM
     Dosage: DAILY
     Route: 048
  9. ONDANSETRON HCL [Concomitant]
     Indication: NAUSEA
     Route: 048

REACTIONS (4)
  - NASOPHARYNGITIS [None]
  - RESPIRATORY TRACT CONGESTION [None]
  - NASAL CONGESTION [None]
  - COUGH [None]
